FAERS Safety Report 18998764 (Version 1)
Quarter: 2021Q1

REPORT INFORMATION
  Report Type: Spontaneous
  Country: GB (occurrence: GB)
  Receive Date: 20210312
  Receipt Date: 20210312
  Transmission Date: 20210420
  Serious: No
  Sender: FDA-Public Use
  Company Number: GB-ALKEM LABORATORIES LIMITED-GB-ALKEM-2020-08865

PATIENT
  Age: 43 Year
  Sex: Female

DRUGS (2)
  1. CINACALCET. [Suspect]
     Active Substance: CINACALCET
     Indication: HYPERPARATHYROIDISM
     Dosage: UNK
     Route: 048
  2. ADOPORT [Concomitant]
     Active Substance: TACROLIMUS
     Indication: ILL-DEFINED DISORDER
     Dosage: UNK
     Route: 065

REACTIONS (2)
  - Chapped lips [Recovering/Resolving]
  - Dry mouth [Recovering/Resolving]
